FAERS Safety Report 5341254-7 (Version None)
Quarter: 2007Q2

REPORT INFORMATION
  Report Type: 
  Country: None (occurrence: None)
  Receive Date: 20070404
  Receipt Date: 20070130
  Transmission Date: 20071010
  Serious: Yes (Other)
  Sender: FDA-Public Use
  Company Number: 2007008261

PATIENT
  Sex: Male
  Weight: 72.5755 kg

DRUGS (2)
  1. GEODON [Suspect]
     Dosage: 80 MG (40 MG, 2 IN 1 D)
  2. ALL OTHER THERAPEUTIC PRODUCTS (ALL OTHER THERAPEUTIC PRODUCTS) [Concomitant]

REACTIONS (3)
  - DYSTONIA [None]
  - MUSCULOSKELETAL STIFFNESS [None]
  - OCULOGYRATION [None]
